FAERS Safety Report 19817007 (Version 1)
Quarter: 2021Q3

REPORT INFORMATION
  Report Type: Spontaneous
  Country: CN (occurrence: CN)
  Receive Date: 20210910
  Receipt Date: 20210910
  Transmission Date: 20211014
  Serious: Yes (Hospitalization, Disabling, Other)
  Sender: FDA-Public Use
  Company Number: CN-ASTRAZENECA-2021A717889

PATIENT
  Age: 66 Year
  Sex: Female

DRUGS (3)
  1. TAGRISSO [Suspect]
     Active Substance: OSIMERTINIB
     Indication: SYMPTOMATIC TREATMENT
     Route: 048
     Dates: start: 20210501, end: 20210820
  2. TAGRISSO [Suspect]
     Active Substance: OSIMERTINIB
     Indication: SYMPTOMATIC TREATMENT
     Route: 048
     Dates: start: 20180701, end: 20210430
  3. AITAN (TRANSLITERATION) [Suspect]
     Active Substance: RIVOCERANIB MESYLATE
     Indication: SYMPTOMATIC TREATMENT
     Route: 048
     Dates: start: 20210201, end: 20210820

REACTIONS (6)
  - Coronary artery disease [Unknown]
  - Interstitial lung disease [Unknown]
  - Pneumonia [Unknown]
  - Cardiac failure [Not Recovered/Not Resolved]
  - Respiratory failure [Unknown]
  - Acute coronary syndrome [Unknown]

NARRATIVE: CASE EVENT DATE: 20210827
